FAERS Safety Report 15615464 (Version 2)
Quarter: 2018Q4

REPORT INFORMATION
  Report Type: Spontaneous
  Country: US (occurrence: US)
  Receive Date: 20181114
  Receipt Date: 20181129
  Transmission Date: 20190205
  Serious: Yes (Other)
  Sender: FDA-Public Use
  Company Number: US-CONCORDIA PHARMACEUTICALS INC.-GSH201811-003918

PATIENT
  Sex: Female

DRUGS (8)
  1. LEFLUNOMIDE. [Concomitant]
     Active Substance: LEFLUNOMIDE
     Dates: start: 2016, end: 201708
  2. ACTEMRA [Concomitant]
     Active Substance: TOCILIZUMAB
     Dates: start: 201705, end: 201712
  3. PLAQUENIL [Suspect]
     Active Substance: HYDROXYCHLOROQUINE SULFATE
     Route: 065
  4. XELJANZ [Concomitant]
     Active Substance: TOFACITINIB CITRATE
  5. METHOTREXATE. [Concomitant]
     Active Substance: METHOTREXATE
     Dates: start: 201510, end: 201601
  6. ENBREL [Concomitant]
     Active Substance: ETANERCEPT
     Dates: start: 201808, end: 201810
  7. ORENCIA [Concomitant]
     Active Substance: ABATACEPT
     Dates: start: 201802, end: 201808
  8. HUMIRA [Concomitant]
     Active Substance: ADALIMUMAB
     Dates: start: 201610, end: 201703

REACTIONS (2)
  - Polyarthritis [Unknown]
  - Drug ineffective [Unknown]

NARRATIVE: CASE EVENT DATE: 2015
